FAERS Safety Report 23744242 (Version 1)
Quarter: 2024Q2

REPORT INFORMATION
  Report Type: Spontaneous
  Country: ES (occurrence: ES)
  Receive Date: 20240415
  Receipt Date: 20240415
  Transmission Date: 20240716
  Serious: Yes (Life-Threatening, Hospitalization)
  Sender: FDA-Public Use
  Company Number: ES-SUN PHARMACEUTICAL INDUSTRIES LTD-2024RR-442359

PATIENT
  Age: 33 Year
  Sex: Female

DRUGS (3)
  1. ACETAMINOPHEN [Suspect]
     Active Substance: ACETAMINOPHEN
     Indication: Intentional overdose
     Dosage: 30 GRAM, TOTAL 1
     Route: 048
     Dates: start: 20230925, end: 20230925
  2. DEXKETOPROFEN [Suspect]
     Active Substance: DEXKETOPROFEN
     Indication: Intentional overdose
     Dosage: 250 MILLIGRAM, IN TOTAL
     Route: 048
     Dates: start: 20230925, end: 20230925
  3. DIAZEPAM [Concomitant]
     Active Substance: DIAZEPAM
     Indication: Intentional overdose
     Dosage: 5 MILLIGRAM
     Route: 048
     Dates: start: 20230925, end: 20230925

REACTIONS (2)
  - Intentional overdose [Recovered/Resolved]
  - Hepatocellular injury [Recovered/Resolved]

NARRATIVE: CASE EVENT DATE: 20230925
